FAERS Safety Report 24413616 (Version 4)
Quarter: 2025Q1

REPORT INFORMATION
  Report Type: Spontaneous
  Country: US (occurrence: US)
  Receive Date: 20241008
  Receipt Date: 20250103
  Transmission Date: 20250408
  Serious: No
  Sender: AMGEN
  Company Number: US-AMGEN-USASP2024198757

PATIENT
  Age: 57 Year
  Sex: Female
  Weight: 68.027 kg

DRUGS (4)
  1. TEPEZZA [Suspect]
     Active Substance: TEPROTUMUMAB-TRBW
     Indication: Toxic goitre
     Dosage: 1420 MILLIGRAM, Q3WK (1420 MG OF TEPEZZA INTRAVENOUSLY FOR DOSES 2-8 EVERY 3 WEEKS. INFUSE 2ND DOSE
     Route: 042
     Dates: start: 2022
  2. TEPEZZA [Suspect]
     Active Substance: TEPROTUMUMAB-TRBW
     Indication: Endocrine ophthalmopathy
     Dosage: 1420 MILLIGRAM, Q3WK (1420 MG OF TEPEZZA INTRAVENOUSLY FOR DOSES 2-8 EVERY 3 WEEKS. INFUSE 2ND DOSE
     Route: 042
     Dates: start: 20240909
  3. WATER FOR INJECTION [Concomitant]
     Active Substance: WATER
  4. SODIUM CHLORIDE [Concomitant]
     Active Substance: SODIUM CHLORIDE

REACTIONS (4)
  - Bone loss [Unknown]
  - Osteoporosis [Unknown]
  - Madarosis [Not Recovered/Not Resolved]
  - Fatigue [Unknown]

NARRATIVE: CASE EVENT DATE: 20220101
